FAERS Safety Report 24080878 (Version 1)
Quarter: 2024Q3

REPORT INFORMATION
  Report Type: Spontaneous
  Country: US (occurrence: None)
  Receive Date: 20240710
  Receipt Date: 20240710
  Transmission Date: 20241017
  Serious: No
  Sender: Public
  Company Number: None

PATIENT
  Age: 68 Year
  Sex: Female

DRUGS (1)
  1. ERIVEDGE [Suspect]
     Active Substance: VISMODEGIB

REACTIONS (6)
  - Nausea [None]
  - Fatigue [None]
  - Alopecia [None]
  - Taste disorder [None]
  - Back pain [None]
  - Aneurysm [None]

NARRATIVE: CASE EVENT DATE: 20240709
